FAERS Safety Report 10017400 (Version 2)
Quarter: 2014Q3

REPORT INFORMATION
  Report Type: Spontaneous
  Country: US (occurrence: US)
  Receive Date: 20140318
  Receipt Date: 20140821
  Transmission Date: 20150326
  Serious: Yes (Other)
  Sender: FDA-Public Use
  Company Number: US-PFIZER INC-2014073739

PATIENT
  Age: 55 Year
  Sex: Female
  Weight: 55.78 kg

DRUGS (4)
  1. LYRICA [Suspect]
     Active Substance: PREGABALIN
     Dosage: 50 MG, DAILY
     Route: 048
  2. FISH OIL [Concomitant]
     Active Substance: FISH OIL
     Dosage: UNK
  3. LYRICA [Suspect]
     Active Substance: PREGABALIN
     Indication: NEURALGIA
     Dosage: 25 MG, 2X/DAY
     Route: 048
     Dates: start: 20140308
  4. METOPROLOL [Concomitant]
     Active Substance: METOPROLOL
     Indication: HYPERTENSION
     Dosage: 25 MG, 2X/DAY

REACTIONS (12)
  - Intentional product misuse [Unknown]
  - Abasia [Unknown]
  - Drug ineffective [Unknown]
  - Drug intolerance [Recovered/Resolved]
  - Pre-existing condition improved [Unknown]
  - Dyskinesia [Unknown]
  - Posture abnormal [Recovered/Resolved]
  - Feeling abnormal [Recovered/Resolved]
  - Therapeutic response changed [Unknown]
  - Blindness [Unknown]
  - Hypoaesthesia [Unknown]
  - Mutism [Unknown]

NARRATIVE: CASE EVENT DATE: 20140310
